FAERS Safety Report 26108772 (Version 1)
Quarter: 2025Q4

REPORT INFORMATION
  Report Type: Spontaneous
  Country: US (occurrence: US)
  Receive Date: 20251201
  Receipt Date: 20251201
  Transmission Date: 20260118
  Serious: No
  Sender: DR REDDYS
  Company Number: US-DRL-USA-USA/2025/11/017612

PATIENT
  Sex: Male

DRUGS (1)
  1. FLUOROURACIL [Suspect]
     Active Substance: FLUOROURACIL
     Indication: Basal cell carcinoma
     Dosage: FLUOROURACIL CREAM, USP 5 % (40 G) /AFTER APPLYING THE CREAM
     Route: 061

REACTIONS (3)
  - Ear swelling [Unknown]
  - Ear inflammation [Unknown]
  - Skin reaction [Unknown]
